FAERS Safety Report 19012933 (Version 1)
Quarter: 2021Q1

REPORT INFORMATION
  Report Type: Not Available
  Country: CA (occurrence: CA)
  Receive Date: 20210316
  Receipt Date: 20210316
  Transmission Date: 20210420
  Serious: Yes (Life-Threatening)
  Sender: FDA-Public Use
  Company Number: CA-CELGENEUS-CAN-20210303535

PATIENT
  Age: 71 Year
  Sex: Male
  Weight: 48 kg

DRUGS (3)
  1. ISTODAX [Suspect]
     Active Substance: ROMIDEPSIN
     Indication: PRODUCT USED FOR UNKNOWN INDICATION
     Dosage: 21.5 MILLIGRAM
     Route: 042
  2. LACOSAMIDE. [Concomitant]
     Active Substance: LACOSAMIDE
     Indication: PRODUCT USED FOR UNKNOWN INDICATION
     Route: 048
  3. DEXAMETHASONE. [Concomitant]
     Active Substance: DEXAMETHASONE
     Indication: PRODUCT USED FOR UNKNOWN INDICATION
     Route: 065

REACTIONS (2)
  - Herpes zoster reactivation [Not Recovered/Not Resolved]
  - Encephalitis [Not Recovered/Not Resolved]
